FAERS Safety Report 10192461 (Version 1)
Quarter: 2014Q2

REPORT INFORMATION
  Report Type: Spontaneous
  Country: DK (occurrence: DK)
  Receive Date: 20140523
  Receipt Date: 20140523
  Transmission Date: 20141212
  Serious: Yes (Disabling)
  Sender: FDA-Public Use
  Company Number: DK-ACTAVIS-2014-10997

PATIENT
  Age: 55 Year
  Sex: Female

DRUGS (2)
  1. EPIRUBICIN ACTAVIS [Suspect]
     Indication: CHEMOTHERAPY
     Dosage: UNK
     Route: 065
     Dates: start: 2012
  2. SENDOXAN [Suspect]
     Indication: CHEMOTHERAPY
     Dosage: UNK
     Route: 065
     Dates: start: 2012

REACTIONS (8)
  - Sepsis [Recovered/Resolved]
  - Necrotising fasciitis [Recovered/Resolved with Sequelae]
  - Walking disability [Not Recovered/Not Resolved]
  - Localised infection [Recovered/Resolved]
  - Pain in extremity [Not Recovered/Not Resolved]
  - Scar [Not Recovered/Not Resolved]
  - Neutropenia [Recovered/Resolved]
  - Transplant [Unknown]
